FAERS Safety Report 8173507-1 (Version None)
Quarter: 2012Q1

REPORT INFORMATION
  Report Type: 
  Country: None (occurrence: None)
  Receive Date: 20120229
  Receipt Date: 20120222
  Transmission Date: 20120608
  Serious: Yes (Other)
  Sender: FDA-Public Use
  Company Number: JP-JNJFOC-20120211943

PATIENT
  Age: 53 Year
  Sex: Female

DRUGS (7)
  1. ITRACONAZOLE [Suspect]
     Indication: INFECTION PROPHYLAXIS
     Route: 065
     Dates: start: 20101101
  2. SULFAMETHOXAZOLE AND TRIMETHOPRIM [Suspect]
     Indication: INFECTION PROPHYLAXIS
     Route: 065
     Dates: start: 20101101
  3. LENALIDOMIDE [Interacting]
     Indication: MULTIPLE MYELOMA
     Route: 065
  4. LENALIDOMIDE [Interacting]
     Route: 065
     Dates: start: 20101101
  5. LENALIDOMIDE [Interacting]
     Route: 065
  6. DEXAMETHASONE [Concomitant]
     Indication: MULTIPLE MYELOMA
     Route: 065
     Dates: start: 20101001
  7. LENALIDOMIDE [Interacting]
     Route: 065
     Dates: start: 20101001

REACTIONS (4)
  - DRUG INTERACTION [None]
  - DRUG INEFFECTIVE [None]
  - NEUTROPENIA [None]
  - DRUG LEVEL INCREASED [None]
